FAERS Safety Report 24971557 (Version 1)
Quarter: 2025Q1

REPORT INFORMATION
  Report Type: Spontaneous
  Country: US (occurrence: US)
  Receive Date: 20250214
  Receipt Date: 20250214
  Transmission Date: 20250409
  Serious: Yes (Hospitalization)
  Sender: OTSUKA
  Company Number: US-MMM-Otsuka-DAR2P3LC

PATIENT
  Age: 47 Year
  Sex: Male
  Weight: 149.69 kg

DRUGS (7)
  1. NUEDEXTA [Suspect]
     Active Substance: DEXTROMETHORPHAN HYDROBROMIDE\QUINIDINE SULFATE
     Indication: Amyotrophic lateral sclerosis
     Dosage: 1 DF (20/10 MG), BID (TWICE DAILY)
     Route: 065
  2. NUEDEXTA [Suspect]
     Active Substance: DEXTROMETHORPHAN HYDROBROMIDE\QUINIDINE SULFATE
     Indication: Affect lability
  3. RILUZOLE [Concomitant]
     Active Substance: RILUZOLE
     Indication: Amyotrophic lateral sclerosis
     Dosage: 50 MG, BID
     Route: 065
  4. RADICAVA [Concomitant]
     Active Substance: EDARAVONE
     Indication: Amyotrophic lateral sclerosis
     Route: 065
  5. METFORMIN HYDROCHLORIDE [Concomitant]
     Active Substance: METFORMIN HYDROCHLORIDE
     Indication: Diabetes mellitus
     Dosage: 500 MG, BID
     Route: 065
  6. ESCITALOPRAM OXALATE [Concomitant]
     Active Substance: ESCITALOPRAM OXALATE
     Indication: Depression
     Dosage: 1.5 DF (ONE AND HALF TABLET), QD
     Route: 065
  7. LISINOPRIL [Concomitant]
     Active Substance: LISINOPRIL
     Indication: Hypertension
     Dosage: 40 MG, QD
     Route: 065

REACTIONS (2)
  - Feeding tube user [Unknown]
  - Therapy interrupted [Not Recovered/Not Resolved]

NARRATIVE: CASE EVENT DATE: 20250110
